FAERS Safety Report 18361957 (Version 2)
Quarter: 2020Q4

REPORT INFORMATION
  Report Type: Spontaneous
  Country: US (occurrence: US)
  Receive Date: 20201008
  Receipt Date: 20201016
  Transmission Date: 20210114
  Serious: No
  Sender: FDA-Public Use
  Company Number: US-TEVA-2020-US-1835926

PATIENT
  Sex: Female

DRUGS (2)
  1. BACLOFEN TEVA [Suspect]
     Active Substance: BACLOFEN
     Indication: MUSCLE SPASTICITY
     Route: 065
     Dates: start: 2018
  2. BACLOFEN TEVA [Suspect]
     Active Substance: BACLOFEN
     Route: 065
     Dates: start: 2017

REACTIONS (5)
  - Drug ineffective [Unknown]
  - Product formulation issue [Unknown]
  - Drug intolerance [Unknown]
  - Gait disturbance [Unknown]
  - Therapeutic product effect incomplete [Unknown]

NARRATIVE: CASE EVENT DATE: 202009
